FAERS Safety Report 9008861 (Version 2)
Quarter: 2013Q2

REPORT INFORMATION
  Report Type: Spontaneous
  Country: US (occurrence: US)
  Receive Date: 20130111
  Receipt Date: 20130424
  Transmission Date: 20140414
  Serious: Yes (Hospitalization)
  Sender: FDA-Public Use
  Company Number: US-GILEAD-2013-0067698

PATIENT
  Sex: Female

DRUGS (2)
  1. LETAIRIS [Suspect]
     Indication: PULMONARY HYPERTENSION
     Dosage: 5 MG, QD
     Route: 048
     Dates: start: 20121207
  2. LETAIRIS [Suspect]
     Indication: SCLERODERMA

REACTIONS (4)
  - Pneumonia [Recovering/Resolving]
  - Headache [Unknown]
  - Vomiting [Unknown]
  - Nausea [Unknown]
